FAERS Safety Report 4648588-X (Version None)
Quarter: 2005Q2

REPORT INFORMATION
  Report Type: 
  Country: None (occurrence: None)
  Receive Date: 20050427
  Receipt Date: 20050414
  Transmission Date: 20051028
  Serious: Yes (Disabling)
  Sender: FDA-Public Use
  Company Number: 2005061796

PATIENT
  Age: 35 Year
  Sex: Female
  Weight: 78 kg

DRUGS (1)
  1. DEPO-PROVERA [Suspect]
     Indication: CONTRACEPTION
     Dosage: (150 MG), INTRAVENOUS
     Route: 042
     Dates: start: 20020110, end: 20050101

REACTIONS (3)
  - MIGRAINE [None]
  - MUSCLE TWITCHING [None]
  - MYALGIA [None]
